FAERS Safety Report 20820799 (Version 1)
Quarter: 2022Q2

REPORT INFORMATION
  Report Type: Report from Study
  Country: US (occurrence: US)
  Receive Date: 20220512
  Receipt Date: 20220512
  Transmission Date: 20220721
  Serious: No
  Sender: FDA-Public Use
  Company Number: US-NOVARTISTESTPH-NVSC2022US109004

PATIENT
  Age: 67 Year
  Sex: Male

DRUGS (1)
  1. ENTRESTO [Suspect]
     Active Substance: SACUBITRIL\VALSARTAN
     Indication: Myocardial infarction
     Dosage: 1 DOSAGE FORM, BID (24/26MG)
     Route: 048
     Dates: start: 202007

REACTIONS (4)
  - COVID-19 [Recovering/Resolving]
  - Cough [Recovering/Resolving]
  - Weight decreased [Unknown]
  - Product use in unapproved indication [Unknown]

NARRATIVE: CASE EVENT DATE: 20200701
